FAERS Safety Report 6136297-X (Version None)
Quarter: 2009Q1

REPORT INFORMATION
  Report Type: 
  Country: None (occurrence: None)
  Receive Date: 20090325
  Receipt Date: 20090310
  Transmission Date: 20090719
  Serious: Yes (Hospitalization)
  Sender: FDA-Public Use
  Company Number: 1000005319

PATIENT
  Sex: Male

DRUGS (1)
  1. CITALOPRAM HYDROBROMIDE [Suspect]
     Indication: MAJOR DEPRESSION
     Dosage: DOSAGE TITRATION FROM 20 MG/DAILY UPTO 60 MG/DAILY.

REACTIONS (1)
  - SUBSTANCE ABUSE [None]
